FAERS Safety Report 18756343 (Version 1)
Quarter: 2021Q1

REPORT INFORMATION
  Report Type: Spontaneous
  Country: US (occurrence: US)
  Receive Date: 20210119
  Receipt Date: 20210119
  Transmission Date: 20210419
  Serious: Yes (Other)
  Sender: FDA-Public Use
  Company Number: US-SA-2021SA012103

PATIENT
  Age: 57 Year
  Sex: Male

DRUGS (1)
  1. ZANTAC [Suspect]
     Active Substance: RANITIDINE HYDROCHLORIDE
     Dosage: UNKNOWN AT THIS TIME
     Dates: start: 200101, end: 202001

REACTIONS (3)
  - Colorectal cancer stage III [Unknown]
  - Neoplasm malignant [Unknown]
  - Appendix cancer [Unknown]

NARRATIVE: CASE EVENT DATE: 20160501
